FAERS Safety Report 10437611 (Version 1)
Quarter: 2014Q3

REPORT INFORMATION
  Report Type: Spontaneous
  Country: US (occurrence: US)
  Receive Date: 20140908
  Receipt Date: 20140908
  Transmission Date: 20150326
  Serious: Yes (Hospitalization)
  Sender: FDA-Public Use
  Company Number: US-MYLANLABS-2014M1003610

PATIENT

DRUGS (1)
  1. CARBIDOPA/LEVODOPA [Suspect]
     Active Substance: CARBIDOPA\LEVODOPA
     Route: 065

REACTIONS (9)
  - Dyskinesia [None]
  - Mania [None]
  - Panic attack [None]
  - Overdose [None]
  - Hallucination [None]
  - Suicidal ideation [None]
  - Dysphoria [None]
  - Anxiety [None]
  - Dopamine dysregulation syndrome [Recovered/Resolved]
